FAERS Safety Report 14075466 (Version 2)
Quarter: 2017Q4

REPORT INFORMATION
  Report Type: Spontaneous
  Country: CO (occurrence: CO)
  Receive Date: 20171011
  Receipt Date: 20171121
  Transmission Date: 20180321
  Serious: Yes (Hospitalization)
  Sender: FDA-Public Use
  Company Number: CO-GE HEALTHCARE LIFE SCIENCES-2017CSU003179

PATIENT

DRUGS (1)
  1. OMNIPAQUE [Suspect]
     Active Substance: IOHEXOL
     Indication: SEIZURE
     Dosage: 25 ML, SINGLE
     Route: 042
     Dates: start: 20170922, end: 20170922

REACTIONS (5)
  - Tachypnoea [Recovered/Resolved]
  - Hyperaemia [Recovered/Resolved]
  - Tachycardia [Recovered/Resolved]
  - Rash [Recovered/Resolved]
  - Respiratory distress [Recovered/Resolved]

NARRATIVE: CASE EVENT DATE: 20170922
